FAERS Safety Report 9681655 (Version 1)
Quarter: 2013Q4

REPORT INFORMATION
  Report Type: Spontaneous
  Country: US (occurrence: US)
  Receive Date: 20131111
  Receipt Date: 20131111
  Transmission Date: 20140711
  Serious: No
  Sender: FDA-Public Use
  Company Number: US-009507513-1311USA003266

PATIENT
  Sex: Female

DRUGS (2)
  1. HYZAAR [Suspect]
     Indication: HYPERTENSION
     Dosage: UNK
     Dates: end: 20090810
  2. HYZAAR [Suspect]
     Dosage: 12.5/100
     Dates: start: 20090811

REACTIONS (1)
  - Hypotension [Unknown]
